FAERS Safety Report 15380165 (Version 2)
Quarter: 2018Q3

REPORT INFORMATION
  Report Type: Not Available
  Country: US (occurrence: US)
  Receive Date: 20180913
  Receipt Date: 20180924
  Transmission Date: 20181010
  Serious: Yes (Death, Hospitalization)
  Sender: FDA-Public Use
  Company Number: US-NEUROCRINE BIOSCIENCES INC.-2018NBI02780

PATIENT
  Age: 62 Year
  Sex: Female

DRUGS (31)
  1. BUDESONIDE. [Concomitant]
     Active Substance: BUDESONIDE
  2. LORATADINE. [Concomitant]
     Active Substance: LORATADINE
  3. QUETIAPINE FUMARATE. [Concomitant]
     Active Substance: QUETIAPINE FUMARATE
  4. BUSPIRONE HYDROCHLORIDE. [Concomitant]
     Active Substance: BUSPIRONE HYDROCHLORIDE
  5. LOPERAMIDE HYDROCHLORIDE. [Concomitant]
     Active Substance: LOPERAMIDE HYDROCHLORIDE
  6. SILDENAFIL CITRATE. [Concomitant]
     Active Substance: SILDENAFIL CITRATE
  7. WARFARIN SODIUM. [Concomitant]
     Active Substance: WARFARIN SODIUM
  8. TUSSIN DM [Concomitant]
     Active Substance: DEXTROMETHORPHAN HYDROBROMIDE\GUAIFENESIN
  9. DALIRESP [Concomitant]
     Active Substance: ROFLUMILAST
  10. THERA?M PLUS [Concomitant]
  11. POTASSIUM CHLORIDE ER [Concomitant]
     Active Substance: POTASSIUM CHLORIDE
  12. VRAYLAR [Concomitant]
     Active Substance: CARIPRAZINE
  13. MAPAP [Concomitant]
     Active Substance: ACETAMINOPHEN
  14. MILK OF MAGNESIA [Concomitant]
     Active Substance: MAGNESIUM HYDROXIDE
  15. PERFOROMIST [Concomitant]
     Active Substance: FORMOTEROL FUMARATE DIHYDRATE
  16. INGREZZA [Suspect]
     Active Substance: VALBENAZINE
     Route: 048
     Dates: start: 20171220, end: 20180809
  17. CLONAZEPAM. [Concomitant]
     Active Substance: CLONAZEPAM
  18. FLUOXETINE HYDROCHLORIDE. [Concomitant]
     Active Substance: FLUOXETINE HYDROCHLORIDE
  19. ZINC OXIDE. [Concomitant]
     Active Substance: ZINC OXIDE
  20. INGREZZA [Suspect]
     Active Substance: VALBENAZINE
     Indication: TARDIVE DYSKINESIA
     Route: 048
     Dates: start: 20171212, end: 20171219
  21. ALBUTEROL SULFATE. [Concomitant]
     Active Substance: ALBUTEROL SULFATE
  22. MIRALAX [Concomitant]
     Active Substance: POLYETHYLENE GLYCOL 3350
  23. FUROSEMIDE. [Concomitant]
     Active Substance: FUROSEMIDE
  24. IPRATROPIUM BROMIDE. [Concomitant]
     Active Substance: IPRATROPIUM BROMIDE
  25. LETAIRIS [Concomitant]
     Active Substance: AMBRISENTAN
  26. VITAMIN D [Concomitant]
     Active Substance: CHOLECALCIFEROL
  27. INGREZZA [Suspect]
     Active Substance: VALBENAZINE
     Route: 048
  28. BENZTROPINE MESYLATE. [Concomitant]
     Active Substance: BENZTROPINE MESYLATE
  29. CALCIUM + D [Concomitant]
     Active Substance: CALCIUM\VITAMIN D
  30. LEVOTHYROXINE SODIUM. [Concomitant]
     Active Substance: LEVOTHYROXINE SODIUM
  31. NAMZARIC [Concomitant]
     Active Substance: DONEPEZIL HYDROCHLORIDE\MEMANTINE HYDROCHLORIDE

REACTIONS (2)
  - Hospitalisation [Unknown]
  - Death [Fatal]

NARRATIVE: CASE EVENT DATE: 201808
